FAERS Safety Report 4439199-X (Version None)
Quarter: 2004Q3

REPORT INFORMATION
  Report Type: 
  Country: None (occurrence: None)
  Receive Date: 20040831
  Receipt Date: 20040824
  Transmission Date: 20050211
  Serious: Yes (Hospitalization)
  Sender: FDA-Public Use
  Company Number: 2004224530US

PATIENT
  Age: 73 Year
  Sex: Female

DRUGS (3)
  1. CLEOCIN HCL [Suspect]
     Indication: ESCHERICHIA URINARY TRACT INFECTION
     Dates: start: 20040601, end: 20040601
  2. METHOCARBAMOL [Suspect]
     Indication: MUSCLE SPASMS
     Dates: start: 20040601, end: 20040601
  3. NYSTATIN [Concomitant]

REACTIONS (10)
  - ADVERSE DRUG REACTION [None]
  - ASTHENIA [None]
  - BODY TEMPERATURE INCREASED [None]
  - CHILLS [None]
  - COGNITIVE DISORDER [None]
  - DEPRESSED LEVEL OF CONSCIOUSNESS [None]
  - DRUG HYPERSENSITIVITY [None]
  - FATIGUE [None]
  - HILAR LYMPHADENOPATHY [None]
  - LYMPHADENOPATHY MEDIASTINAL [None]
